FAERS Safety Report 5897519-3 (Version None)
Quarter: 2008Q3

REPORT INFORMATION
  Report Type: 
  Country: None (occurrence: None)
  Receive Date: 20080924
  Receipt Date: 20080924
  Transmission Date: 20090109
  Serious: No
  Sender: FDA-Public Use
  Company Number: None

PATIENT
  Age: 36 Year
  Sex: Female

DRUGS (3)
  1. TRAZODONE HCL [Suspect]
     Dates: start: 20071212, end: 20080131
  2. MULTI-VITAMIN [Suspect]
     Dates: start: 20080121, end: 20080204
  3. ORAL CONTRACEPTIVE PILL [Suspect]

REACTIONS (2)
  - HEPATIC NECROSIS [None]
  - LIVER INJURY [None]
